FAERS Safety Report 9018528 (Version 1)
Quarter: 2013Q1

REPORT INFORMATION
  Report Type: Spontaneous
  Country: US (occurrence: US)
  Receive Date: 20130118
  Receipt Date: 20130118
  Transmission Date: 20140127
  Serious: No
  Sender: FDA-Public Use
  Company Number: US-PFIZER INC-2013018339

PATIENT
  Age: 57 Year
  Sex: Male
  Weight: 97.51 kg

DRUGS (1)
  1. VIAGRA [Suspect]
     Indication: ERECTILE DYSFUNCTION
     Dosage: UNK (50 TO 100MG), DAILY
     Dates: start: 200901

REACTIONS (1)
  - Hypertension [Recovering/Resolving]
